FAERS Safety Report 6538259-7 (Version None)
Quarter: 2010Q1

REPORT INFORMATION
  Report Type: 
  Country: None (occurrence: None)
  Receive Date: 20100114
  Receipt Date: 20100112
  Transmission Date: 20100710
  Serious: Yes (Death)
  Sender: FDA-Public Use
  Company Number: CN-BAXTER-2009BH002344

PATIENT
  Age: 73 Year
  Sex: Female

DRUGS (4)
  1. CYCLOPHOSPHAMIDE [Suspect]
     Indication: RENAL VASCULITIS
     Route: 042
  2. CYCLOPHOSPHAMIDE [Suspect]
     Route: 065
  3. PREDNISONE [Concomitant]
     Indication: RENAL VASCULITIS
     Route: 048
  4. MYOCOPHENOLATE MOFETIL [Concomitant]
     Indication: RENAL VASCULITIS

REACTIONS (2)
  - LEUKOPENIA [None]
  - SEPTIC SHOCK [None]
